FAERS Safety Report 8288537-9 (Version None)
Quarter: 2012Q2

REPORT INFORMATION
  Report Type: 
  Country: None (occurrence: None)
  Receive Date: 20120416
  Receipt Date: 20120322
  Transmission Date: 20120825
  Serious: Yes (Hospitalization)
  Sender: FDA-Public Use
  Company Number: HR-BAXTER-2012BAX000402

PATIENT
  Sex: Male

DRUGS (7)
  1. DIANEAL PD4 OTOPINA ZA PERITONEJSKU DIJALIZU [Suspect]
     Route: 033
     Dates: start: 20070205
  2. EXTRANEAL [Suspect]
     Route: 033
     Dates: start: 20070205
  3. EXTRANEAL [Suspect]
  4. NUTRINEAL PD4 S 1,1% AMINOKISELIN [Suspect]
     Route: 033
     Dates: start: 20070205
  5. DIANEAL PD4 OTOPINA ZA PERITONEJSKU DIJALIZU [Suspect]
     Route: 033
     Dates: start: 20070205
  6. DIANEAL PD4 OTOPINA ZA PERITONEJSKU DIJALIZU [Suspect]
  7. DIANEAL PD4 OTOPINA ZA PERITONEJSKU DIJALIZU [Suspect]

REACTIONS (4)
  - PERITONITIS BACTERIAL [None]
  - NAUSEA [None]
  - CHILLS [None]
  - PERITONEAL DIALYSIS COMPLICATION [None]
